FAERS Safety Report 10760879 (Version 1)
Quarter: 2015Q1

REPORT INFORMATION
  Report Type: Spontaneous
  Country: US (occurrence: None)
  Receive Date: 20150203
  Receipt Date: 20150203
  Transmission Date: 20150721
  Serious: Yes (Disabling)
  Sender: FDA-Public Use
  Company Number: None

PATIENT
  Age: 69 Year
  Sex: Female
  Weight: 68.04 kg

DRUGS (2)
  1. HUMIRA [Suspect]
     Active Substance: ADALIMUMAB
     Indication: PAIN
     Dosage: EVERY OTHER WEEK, INTO THE MUSCLE
     Dates: start: 20141027, end: 20150202
  2. HUMIRA [Suspect]
     Active Substance: ADALIMUMAB
     Indication: GASTROINTESTINAL INFLAMMATION
     Dosage: EVERY OTHER WEEK, INTO THE MUSCLE
     Dates: start: 20141027, end: 20150202

REACTIONS (1)
  - Alopecia [None]

NARRATIVE: CASE EVENT DATE: 20150120
